FAERS Safety Report 8169274-8 (Version None)
Quarter: 2012Q1

REPORT INFORMATION
  Report Type: 
  Country: None (occurrence: None)
  Receive Date: 20120228
  Receipt Date: 20120216
  Transmission Date: 20120608
  Serious: Yes (Other)
  Sender: FDA-Public Use
  Company Number: US-ASTRAZENECA-2012SE11271

PATIENT
  Age: 62 Year
  Sex: Female
  Weight: 122.5 kg

DRUGS (12)
  1. METOPROLOL TARTRATE [Concomitant]
  2. EFFIENT [Concomitant]
  3. COATBON [Concomitant]
  4. ETHEPEN [Concomitant]
     Dosage: PRN
  5. PRILOSEC [Concomitant]
  6. CRESTOR [Suspect]
     Indication: DYSLIPIDAEMIA
     Route: 048
     Dates: start: 20110901
  7. PERCOCET [Concomitant]
     Dosage: 10 MG-325 MG
  8. NITROSTAT [Concomitant]
  9. ECOTRIN LOW STRENGTH [Concomitant]
  10. LEXOPRIL [Concomitant]
  11. AMBIEN [Concomitant]
  12. VENTOLIN HFA [Concomitant]

REACTIONS (1)
  - VOCAL CORD PARALYSIS [None]
